FAERS Safety Report 10517502 (Version 1)
Quarter: 2014Q4

REPORT INFORMATION
  Report Type: Spontaneous
  Country: US (occurrence: None)
  Receive Date: 20141003
  Receipt Date: 20141003
  Transmission Date: 20150528
  Serious: Yes (Other)
  Sender: FDA-Public Use
  Company Number: 1276759

PATIENT
  Age: 52 Year
  Sex: Female

DRUGS (4)
  1. RIBAVIRIN. [Concomitant]
     Active Substance: RIBAVIRIN
  2. TYLENOL [Concomitant]
     Active Substance: ACETAMINOPHEN
  3. INCIVEK [Concomitant]
     Active Substance: TELAPREVIR
  4. PEGASYS [Suspect]
     Active Substance: PEGINTERFERON ALFA-2A
     Indication: HEPATITIS C
     Route: 058
     Dates: start: 20130726, end: 20130818

REACTIONS (1)
  - Papilloedema [None]

NARRATIVE: CASE EVENT DATE: 201308
